FAERS Safety Report 12672496 (Version 1)
Quarter: 2016Q3

REPORT INFORMATION
  Report Type: Spontaneous
  Country: US (occurrence: US)
  Receive Date: 20160822
  Receipt Date: 20160822
  Transmission Date: 20161109
  Serious: No
  Sender: FDA-Public Use
  Company Number: US-JNJFOC-20160706151

PATIENT
  Sex: Female
  Weight: 70.31 kg

DRUGS (3)
  1. HEAD AND SHOULDERS [Concomitant]
     Active Substance: PYRITHIONE ZINC
     Indication: PRODUCT USED FOR UNKNOWN INDICATION
     Route: 065
  2. MENS ROGAINE EXTRA STRENGTH [Suspect]
     Active Substance: MINOXIDIL
     Indication: ALOPECIA
     Dosage: UP TO THE LINE OF THE DROPPER.
     Route: 061
     Dates: start: 20160629
  3. MENS ROGAINE EXTRA STRENGTH [Suspect]
     Active Substance: MINOXIDIL
     Indication: ALOPECIA
     Route: 061

REACTIONS (4)
  - Product use issue [Unknown]
  - Drug administered at inappropriate site [Unknown]
  - Off label use [Unknown]
  - Drug ineffective [Unknown]
